FAERS Safety Report 20620131 (Version 1)
Quarter: 2022Q1

REPORT INFORMATION
  Report Type: Spontaneous
  Country: US (occurrence: None)
  Receive Date: 20220321
  Receipt Date: 20220321
  Transmission Date: 20220424
  Serious: Yes (Hospitalization)
  Sender: FDA-Public Use
  Company Number: None

PATIENT
  Age: 77 Year
  Sex: Female
  Weight: 68.04 kg

DRUGS (2)
  1. DIOVAN [Suspect]
     Active Substance: VALSARTAN
  2. VALSARTAN [Concomitant]
     Active Substance: VALSARTAN
     Dates: start: 20220218, end: 20220318

REACTIONS (2)
  - Hypertensive crisis [None]
  - Blood pressure inadequately controlled [None]

NARRATIVE: CASE EVENT DATE: 20220318
